FAERS Safety Report 14327203 (Version 2)
Quarter: 2018Q4

REPORT INFORMATION
  Report Type: Spontaneous
  Country: FR (occurrence: FR)
  Receive Date: 20171227
  Receipt Date: 20181128
  Transmission Date: 20190204
  Serious: Yes (Other)
  Sender: FDA-Public Use
  Company Number: FR-SUN PHARMACEUTICAL INDUSTRIES LTD-2017RR-157751

PATIENT
  Age: 61 Year
  Sex: Male

DRUGS (2)
  1. AMLODIPINE [Suspect]
     Active Substance: AMLODIPINE BESYLATE
     Indication: BLOOD PRESSURE MANAGEMENT
     Dosage: 5 MG, QD, CAPSULE, HARD
     Route: 065
     Dates: start: 2014
  2. OLMESARTAN [Suspect]
     Active Substance: OLMESARTAN
     Indication: BLOOD PRESSURE MANAGEMENT
     Dosage: 40 MG, DAILY
     Route: 065
     Dates: start: 2014

REACTIONS (2)
  - Chronic hepatitis [Recovered/Resolved]
  - Drug-induced liver injury [Recovered/Resolved]
